FAERS Safety Report 5405690-2 (Version None)
Quarter: 2007Q3

REPORT INFORMATION
  Report Type: 
  Country: None (occurrence: None)
  Receive Date: 20070806
  Receipt Date: 20070803
  Transmission Date: 20080115
  Serious: Yes (Life-Threatening)
  Sender: FDA-Public Use
  Company Number: PHNU2007DE02239

PATIENT
  Sex: Female

DRUGS (7)
  1. LEPONEX [Suspect]
     Indication: DELUSION
     Dosage: 100 MG/DAY
     Route: 048
     Dates: start: 20070216, end: 20070219
  2. LEPONEX [Suspect]
     Dosage: 12.5 TO 75 MG/DAY
     Route: 048
     Dates: start: 20070208, end: 20070215
  3. HALDOL [Suspect]
     Dosage: 10 MG/DAY
     Route: 048
     Dates: start: 20070110, end: 20070214
  4. HALDOL [Suspect]
     Dosage: 5 MG/DAY
     Route: 048
     Dates: start: 20070214, end: 20070219
  5. TAVOR [Concomitant]
     Dosage: 0.5 TO 3 MG/DAY
     Route: 048
     Dates: start: 20061228
  6. LAMICTAL [Concomitant]
     Dosage: 400 MG/DAY FOR YEARS
     Route: 048
  7. SODIUM CHLORIDE [Concomitant]
     Route: 048
     Dates: start: 20070101

REACTIONS (13)
  - AKINESIA [None]
  - ASPARTATE AMINOTRANSFERASE INCREASED [None]
  - BLOOD CREATINE PHOSPHOKINASE INCREASED [None]
  - C-REACTIVE PROTEIN INCREASED [None]
  - CATATONIA [None]
  - DEPRESSED LEVEL OF CONSCIOUSNESS [None]
  - DISTURBANCE IN ATTENTION [None]
  - MUSCLE RIGIDITY [None]
  - NEUROLEPTIC MALIGNANT SYNDROME [None]
  - PNEUMONIA ASPIRATION [None]
  - PYREXIA [None]
  - SALIVARY HYPERSECRETION [None]
  - TACHYCARDIA [None]
